FAERS Safety Report 6551501-1 (Version None)
Quarter: 2010Q1

REPORT INFORMATION
  Report Type: 
  Country: None (occurrence: None)
  Receive Date: 20100126
  Receipt Date: 20100117
  Transmission Date: 20100710
  Serious: Yes (Other)
  Sender: FDA-Public Use
  Company Number: DZ-ASTRAZENECA-2010SE02202

PATIENT
  Age: 40 Year
  Sex: Male
  Weight: 75 kg

DRUGS (1)
  1. CANDESARTAN CILEXETIL/HYDROCHLOROTHIAZIDE (ATACAND HCT) [Suspect]
     Indication: HYPERTENSION
     Dosage: 16/12.5 MG, 1 TABLET OD
     Route: 048
     Dates: start: 20091222, end: 20091231

REACTIONS (5)
  - ANXIETY [None]
  - EPISTAXIS [None]
  - IRRITABILITY [None]
  - PAIN [None]
  - PARAESTHESIA [None]
